FAERS Safety Report 9383382 (Version 2)
Quarter: 2013Q3

REPORT INFORMATION
  Report Type: Spontaneous
  Country: FR (occurrence: FR)
  Receive Date: 20130704
  Receipt Date: 20130717
  Transmission Date: 20140515
  Serious: Yes (Other)
  Sender: FDA-Public Use
  Company Number: FR-009507513-1307FRA000891

PATIENT
  Age: 93 Year
  Sex: Female

DRUGS (7)
  1. FOSAVANCE [Suspect]
     Indication: OSTEOPOROSIS
     Dosage: 1 DF, QW
     Route: 048
     Dates: start: 20080825, end: 20090327
  2. HEMIGOXINE NATIVELLE [Concomitant]
     Dosage: 1 DF, QD
     Route: 048
  3. LOPRIL [Concomitant]
     Dosage: 25 MG, QD
     Route: 048
  4. PREVISCAN [Concomitant]
     Dosage: 1 DF, QD
     Route: 048
  5. PAROXETINE [Concomitant]
     Dosage: 2 DF, QD
     Route: 048
  6. LASILIX [Concomitant]
     Dosage: 40 MG, QD
     Route: 048
  7. INEXIUM [Concomitant]
     Dosage: 1 DF, QD
     Route: 048

REACTIONS (1)
  - Osteonecrosis [Not Recovered/Not Resolved]
